FAERS Safety Report 7458460-8 (Version None)
Quarter: 2011Q2

REPORT INFORMATION
  Report Type: 
  Country: None (occurrence: None)
  Receive Date: 20110504
  Receipt Date: 20110428
  Transmission Date: 20111010
  Serious: Yes (Hospitalization)
  Sender: FDA-Public Use
  Company Number: B0716804A

PATIENT
  Age: 77 Year
  Sex: Female
  Weight: 100 kg

DRUGS (14)
  1. ENAHEXAL [Concomitant]
     Dosage: 20MG PER DAY
     Route: 048
  2. METFORMIN [Concomitant]
     Indication: DIABETES MELLITUS
     Dosage: 425MG PER DAY
     Route: 048
     Dates: end: 20100409
  3. PARACETAMOL [Concomitant]
     Indication: PAIN
     Dosage: 500MG PER DAY
     Route: 048
     Dates: start: 20100329, end: 20100329
  4. EMBOLEX [Concomitant]
     Dosage: 3000IU PER DAY
     Route: 058
     Dates: start: 20100328, end: 20100427
  5. CEFUROXIME SODIUM [Suspect]
     Indication: INFECTION PROPHYLAXIS
     Dosage: 1500MG PER DAY
     Route: 042
     Dates: start: 20100329, end: 20100407
  6. AMLODIPINE [Concomitant]
     Dosage: 5MG PER DAY
     Route: 048
     Dates: start: 20091101
  7. VOLTAREN [Concomitant]
     Indication: PAIN
     Dosage: 75MG TWICE PER DAY
     Route: 048
     Dates: start: 20050101, end: 20090328
  8. LEVOTHYROXINE SODIUM [Concomitant]
     Indication: HYPOTHYROIDISM
     Dosage: 150MG PER DAY
     Route: 048
  9. HYDROCHLOROTHIAZIDE [Concomitant]
     Dosage: 25MG PER DAY
     Route: 048
     Dates: start: 20100502
  10. ARCOXIA [Concomitant]
     Indication: PAIN
     Dosage: 90MG PER DAY
     Route: 048
     Dates: start: 20100329, end: 20100404
  11. OXYCODONE HYDROCHLORIDE [Concomitant]
     Indication: PAIN
     Dosage: 6CAP PER DAY
     Route: 048
     Dates: start: 20100329, end: 20100329
  12. OXYCODONE HYDROCHLORIDE [Concomitant]
     Dosage: 10MG TWICE PER DAY
     Route: 048
     Dates: start: 20100329, end: 20100404
  13. PANTOZOL [Suspect]
     Dosage: 40MG PER DAY
     Route: 048
     Dates: start: 20100325
  14. MCP [Concomitant]
     Indication: NAUSEA
     Route: 048
     Dates: start: 20100404, end: 20100409

REACTIONS (2)
  - PSEUDOMEMBRANOUS COLITIS [None]
  - DRUG INTERACTION [None]
